FAERS Safety Report 9991572 (Version 1)
Quarter: 2014Q1

REPORT INFORMATION
  Report Type: Report from Study
  Country: US (occurrence: US)
  Receive Date: 20140310
  Receipt Date: 20140310
  Transmission Date: 20141002
  Serious: Yes (Other)
  Sender: FDA-Public Use
  Company Number: US-ACTELION-A-US2014-95851

PATIENT
  Age: 16 Month
  Sex: Female

DRUGS (1)
  1. TRACLEER [Suspect]
     Indication: EXPOSURE VIA BODY FLUID
     Dosage: UNK
     Route: 048

REACTIONS (2)
  - Premature baby [Unknown]
  - Exposure via father [Unknown]
